FAERS Safety Report 8188682-2 (Version None)
Quarter: 2012Q1

REPORT INFORMATION
  Report Type: 
  Country: None (occurrence: None)
  Receive Date: 20120306
  Receipt Date: 20120224
  Transmission Date: 20120608
  Serious: Yes (Death)
  Sender: FDA-Public Use
  Company Number: CO-ELI_LILLY_AND_COMPANY-CO201202007993

PATIENT
  Age: 91 Year
  Sex: Female

DRUGS (10)
  1. METHOTREXATE [Concomitant]
  2. FORTEO [Suspect]
     Indication: OSTEOPOROSIS
     Dosage: 20 UG, QD
     Route: 058
     Dates: start: 20110901, end: 20120120
  3. RANITIDINE [Concomitant]
  4. CHLOROQUINE PHOSPHATE [Concomitant]
  5. KEPPRA [Concomitant]
  6. GABAPENTIN [Concomitant]
  7. GUAIFENESINA [Concomitant]
  8. OMEPRAZOLE [Concomitant]
  9. ENALAPRIL MALEATE [Concomitant]
  10. CALCITRIOL [Concomitant]
     Dosage: UNK

REACTIONS (2)
  - LUNG DISORDER [None]
  - HAEMORRHAGE [None]
